FAERS Safety Report 6366110-7 (Version None)
Quarter: 2009Q3

REPORT INFORMATION
  Report Type: 
  Country: None (occurrence: None)
  Receive Date: 20090920
  Receipt Date: 20090626
  Transmission Date: 20100115
  Serious: No
  Sender: FDA-Public Use
  Company Number: US-BAUSCH-2009BL003156

PATIENT
  Age: 78 Year
  Sex: Female
  Weight: 80 kg

DRUGS (2)
  1. ALAWAY [Suspect]
     Indication: EYE PRURITUS
     Route: 047
     Dates: start: 20090626, end: 20090626
  2. ERYTHROMYCIN [Concomitant]
     Indication: EYE INFECTION
     Route: 047
     Dates: start: 20090623

REACTIONS (1)
  - EYE IRRITATION [None]
